FAERS Safety Report 10081721 (Version 2)
Quarter: 2014Q3

REPORT INFORMATION
  Report Type: Spontaneous
  Country: JP (occurrence: None)
  Receive Date: 20140414
  Receipt Date: 20140730
  Transmission Date: 20150326
  Serious: Yes (Life-Threatening)
  Sender: FDA-Public Use
  Company Number: SP07683

PATIENT
  Age: 74 Year
  Sex: Female

DRUGS (7)
  1. MICARDIS [Concomitant]
     Active Substance: TELMISARTAN
  2. ARTIST [Concomitant]
     Active Substance: CARVEDILOL
  3. LAXOBERON [Concomitant]
     Active Substance: SODIUM PICOSULFATE
  4. OMEPRAZOLE. [Concomitant]
     Active Substance: OMEPRAZOLE
  5. VASOLAN [Concomitant]
     Active Substance: VERAPAMIL HYDROCHLORIDE
  6. BAYASPERIN [Concomitant]
  7. MOVIPREP [Suspect]
     Active Substance: ASCORBIC ACID\POLYETHYLENE GLYCOL 3350\POTASSIUM CHLORIDE\SODIUM ASCORBATE\SODIUM CHLORIDE\SODIUM SULFATE
     Indication: BOWEL PREPARATION
     Route: 048
     Dates: start: 20140123, end: 20140123

REACTIONS (7)
  - Unresponsive to stimuli [None]
  - Vomiting [None]
  - Peripheral coldness [None]
  - Syncope [None]
  - Arrhythmia [None]
  - Blood pressure decreased [None]
  - Bradycardia [None]

NARRATIVE: CASE EVENT DATE: 20140123
